FAERS Safety Report 5161657-3 (Version None)
Quarter: 2006Q4

REPORT INFORMATION
  Report Type: 
  Country: None (occurrence: None)
  Receive Date: 20061130
  Receipt Date: 20060306
  Transmission Date: 20070319
  Serious: No
  Sender: FDA-Public Use
  Company Number: US-BRISTOL-MYERS SQUIBB COMPANY-13304639

PATIENT
  Age: 50 Year
  Sex: Female

DRUGS (11)
  1. GLUCOPHAGE XR [Suspect]
     Indication: DIABETES MELLITUS
  2. GLUCOTROL XL [Concomitant]
  3. LIPITOR [Concomitant]
  4. NOVOLIN [Concomitant]
  5. ACCUPRIL [Concomitant]
  6. PAXIL CR [Concomitant]
  7. VISTARIL-PRN [Concomitant]
  8. NORTRIPTYLINE HCL [Concomitant]
  9. FLONASE [Concomitant]
  10. ATENOLOL [Concomitant]
  11. HYDROCHLOROTHIAZIDE [Concomitant]

REACTIONS (2)
  - NAUSEA [None]
  - VOMITING [None]
